FAERS Safety Report 7788470-2 (Version None)
Quarter: 2011Q3

REPORT INFORMATION
  Report Type: 
  Country: None (occurrence: None)
  Receive Date: 20110927
  Receipt Date: 20110919
  Transmission Date: 20111222
  Serious: Yes (Other)
  Sender: FDA-Public Use
  Company Number: 2011SP044517

PATIENT
  Age: 21 Year
  Sex: Male

DRUGS (1)
  1. CORICIDIN [Suspect]
     Indication: PRODUCT USED FOR UNKNOWN INDICATION

REACTIONS (3)
  - AGGRESSION [None]
  - IMPRISONMENT [None]
  - HOMICIDE [None]
